FAERS Safety Report 12363434 (Version 1)
Quarter: 2016Q2

REPORT INFORMATION
  Report Type: Spontaneous
  Country: US (occurrence: None)
  Receive Date: 20160512
  Receipt Date: 20160512
  Transmission Date: 20160815
  Serious: Yes (Death)
  Sender: FDA-Public Use
  Company Number: None

PATIENT
  Age: 59 Year
  Sex: Male

DRUGS (6)
  1. METRONIDAZOLE. [Concomitant]
     Active Substance: METRONIDAZOLE
  2. XALKORI [Suspect]
     Active Substance: CRIZOTINIB
     Indication: NEOPLASM MALIGNANT
     Route: 048
     Dates: start: 20160301
  3. PROTONIX [Concomitant]
     Active Substance: PANTOPRAZOLE SODIUM
  4. PROCHLORPERAZINE. [Concomitant]
     Active Substance: PROCHLORPERAZINE
  5. PANTOPRAZOLE SODIUM. [Concomitant]
     Active Substance: PANTOPRAZOLE SODIUM
  6. METOPROLOL SUCCINATE ER [Concomitant]
     Active Substance: METOPROLOL SUCCINATE

REACTIONS (2)
  - Thrombosis [None]
  - Cerebrovascular accident [None]

NARRATIVE: CASE EVENT DATE: 20160430
